FAERS Safety Report 6491165-9 (Version None)
Quarter: 2009Q4

REPORT INFORMATION
  Report Type: 
  Country: None (occurrence: None)
  Receive Date: 20091208
  Receipt Date: 20091125
  Transmission Date: 20100525
  Serious: Yes (Hospitalization)
  Sender: FDA-Public Use
  Company Number: UTC-000727

PATIENT
  Age: 50 Year
  Sex: Female
  Weight: 78.6 kg

DRUGS (8)
  1. TYVASO          (TREPROSTINIL SODIUM) [Suspect]
     Indication: PULMONARY ARTERIAL HYPERTENSION
     Dosage: 72 MCG (18 MCG, 4 IN 1 D), INHALATION; 24 MCG (6 MCG, 4 IN 1 D), INHALATION
     Route: 055
     Dates: start: 20091116
  2. TYVASO          (TREPROSTINIL SODIUM) [Suspect]
     Indication: PULMONARY ARTERIAL HYPERTENSION
     Dosage: 72 MCG (18 MCG, 4 IN 1 D), INHALATION; 24 MCG (6 MCG, 4 IN 1 D), INHALATION
     Route: 055
     Dates: start: 20091116
  3. TRACLEER [Concomitant]
  4. TRAZODONE (TRAZOSONE) [Concomitant]
  5. PAXIL [Concomitant]
  6. CARVEDILOL [Concomitant]
  7. ASPIRIN [Concomitant]
  8. OXYGEN (OXYGEN) [Concomitant]

REACTIONS (3)
  - BURNING SENSATION [None]
  - THROAT IRRITATION [None]
  - VENTRICULAR TACHYCARDIA [None]
